FAERS Safety Report 5255272-0 (Version None)
Quarter: 2007Q1

REPORT INFORMATION
  Report Type: 
  Country: None (occurrence: None)
  Receive Date: 20070228
  Receipt Date: 20070214
  Transmission Date: 20070707
  Serious: Yes (Hospitalization)
  Sender: FDA-Public Use
  Company Number: CERZ-10059

PATIENT
  Age: 29 Year
  Sex: Male
  Weight: 38 kg

DRUGS (1)
  1. CEREZYME [Suspect]
     Indication: GAUCHER'S DISEASE
     Dosage: 2400 UNITS Q2WKS IV
     Route: 042
     Dates: start: 19980313

REACTIONS (3)
  - INCISION SITE CELLULITIS [None]
  - LOOSE BODY IN JOINT [None]
  - SKIN INFECTION [None]
